FAERS Safety Report 18735205 (Version 1)
Quarter: 2021Q1

REPORT INFORMATION
  Report Type: Spontaneous
  Country: US (occurrence: US)
  Receive Date: 20210113
  Receipt Date: 20210113
  Transmission Date: 20210419
  Serious: No
  Sender: FDA-Public Use
  Company Number: US-MILLICENT HOLDINGS LTD.-MILL20190860

PATIENT
  Age: 43 Year
  Sex: Female
  Weight: 55.78 kg

DRUGS (5)
  1. FEMRING [Suspect]
     Active Substance: ESTRADIOL ACETATE
     Indication: BLOOD OESTROGEN DECREASED
     Dosage: 10 MG
     Route: 067
  2. ESTROGEN [Concomitant]
     Active Substance: ESTROGENS
     Indication: HYPOTHYROIDISM
     Dosage: UNKNOWN
     Route: 048
  3. FEMRING [Suspect]
     Active Substance: ESTRADIOL ACETATE
     Dosage: UNK
     Route: 067
     Dates: start: 20171219, end: 20171224
  4. PROGESTERONE. [Concomitant]
     Active Substance: PROGESTERONE
     Indication: HORMONE LEVEL ABNORMAL
     Dosage: 100 MG, UNK
     Route: 048
  5. SYNTHROID [Concomitant]
     Active Substance: LEVOTHYROXINE SODIUM
     Indication: HYPOTHYROIDISM
     Dosage: 37.5 MG
     Route: 048

REACTIONS (3)
  - Drug ineffective [Recovered/Resolved]
  - Hyperhidrosis [Recovered/Resolved]
  - Headache [Recovered/Resolved]

NARRATIVE: CASE EVENT DATE: 201712
